FAERS Safety Report 6081238-7 (Version None)
Quarter: 2009Q1

REPORT INFORMATION
  Report Type: 
  Country: None (occurrence: None)
  Receive Date: 20090213
  Receipt Date: 20090128
  Transmission Date: 20090719
  Serious: Yes (Death)
  Sender: FDA-Public Use
  Company Number: ADE2009-0454

PATIENT
  Age: 31 Year
  Sex: Female

DRUGS (2)
  1. FLUOXETINE HYDROCHLORIDE [Suspect]
  2. NORFLUOXETINE [Suspect]

REACTIONS (5)
  - BLOOD PRESSURE IMMEASURABLE [None]
  - CONVULSION [None]
  - HEART RATE DECREASED [None]
  - RESPIRATORY DEPRESSION [None]
  - UNRESPONSIVE TO STIMULI [None]
